FAERS Safety Report 6615201-1 (Version None)
Quarter: 2010Q1

REPORT INFORMATION
  Report Type: 
  Country: None (occurrence: None)
  Receive Date: 20100305
  Receipt Date: 20100302
  Transmission Date: 20100710
  Serious: Yes (Death, Hospitalization)
  Sender: FDA-Public Use
  Company Number: PHHY2010CA12629

PATIENT
  Sex: Female

DRUGS (12)
  1. ACLASTA [Suspect]
     Indication: OSTEOPOROSIS
     Dosage: UNK
     Dates: start: 20080814
  2. ACETAMINOPHEN [Concomitant]
     Dosage: 325 MG
  3. BISOPROLOL [Concomitant]
     Dosage: 5 MG
  4. CALCIUM CARBONATE [Concomitant]
  5. DOCUSATE SODIUM [Concomitant]
     Dosage: UNK
  6. FERROUS GLUCONATE [Concomitant]
  7. LACTULOSE [Concomitant]
  8. SENOKOT [Concomitant]
  9. VITAMIN D [Concomitant]
  10. WARFARIN SODIUM [Concomitant]
  11. ZOPICLONE [Concomitant]
  12. HYDROMORPHONE HYDROCHLORIDE [Concomitant]

REACTIONS (1)
  - DEATH [None]
